FAERS Safety Report 20916745 (Version 1)
Quarter: 2022Q2

REPORT INFORMATION
  Report Type: Spontaneous
  Country: JP (occurrence: JP)
  Receive Date: 20220605
  Receipt Date: 20220605
  Transmission Date: 20220720
  Serious: Yes (Death)
  Sender: FDA-Public Use
  Company Number: JP-NOVARTISPH-NVSC2022JP121885

PATIENT

DRUGS (1)
  1. RECLAST [Suspect]
     Active Substance: ZOLEDRONIC ACID
     Indication: Product used for unknown indication
     Dosage: 5 MG, Q12MO (YEARLY)
     Route: 041

REACTIONS (2)
  - Death [Fatal]
  - Spinal fracture [Unknown]
